FAERS Safety Report 18606983 (Version 7)
Quarter: 2021Q1

REPORT INFORMATION
  Report Type: Spontaneous
  Country: BR (occurrence: BR)
  Receive Date: 20201211
  Receipt Date: 20210310
  Transmission Date: 20210419
  Serious: Yes (Other)
  Sender: FDA-Public Use
  Company Number: NVSC2020BR327862

PATIENT
  Age: 4 Year
  Sex: Male
  Weight: 22 kg

DRUGS (4)
  1. DEPAKOTE [Concomitant]
     Active Substance: DIVALPROEX SODIUM
     Indication: SEIZURE
     Dosage: 2 DF, BID (TWO AFTER LUNCH AND TWO AFTER DINNER)
     Route: 048
     Dates: start: 20200522
  2. TRILEPTAL [Suspect]
     Active Substance: OXCARBAZEPINE
     Dosage: 4 ML, BID
     Route: 048
  3. TRILEPTAL [Suspect]
     Active Substance: OXCARBAZEPINE
     Dosage: 4 ML, BID (ONE AFTER LUNCH AND THE OTHER AFTER DINNER)
     Route: 048
     Dates: start: 202005
  4. TRILEPTAL [Suspect]
     Active Substance: OXCARBAZEPINE
     Indication: SEIZURE
     Dosage: 4 ML, BID
     Route: 048

REACTIONS (8)
  - Vomiting [Recovered/Resolved]
  - Product odour abnormal [Recovered/Resolved]
  - Drug ineffective [Unknown]
  - Product taste abnormal [Recovered/Resolved]
  - Seizure [Unknown]
  - Poor quality product administered [Recovered/Resolved]
  - Petit mal epilepsy [Recovered/Resolved]
  - Product physical consistency issue [Recovered/Resolved]

NARRATIVE: CASE EVENT DATE: 202012
